FAERS Safety Report 6420534-8 (Version None)
Quarter: 2009Q4

REPORT INFORMATION
  Report Type: 
  Country: None (occurrence: None)
  Receive Date: 20091027
  Receipt Date: 20091013
  Transmission Date: 20100525
  Serious: Yes (Other)
  Sender: FDA-Public Use
  Company Number: 1000006403

PATIENT
  Age: 46 Year
  Sex: Male

DRUGS (2)
  1. NEBIVOLOL HCL [Suspect]
     Indication: HYPERTENSION
     Dosage: 5 MG (5 MG, 1 IN 1 D), ORAL;
     Route: 048
     Dates: start: 20090324, end: 20090424
  2. STILNOCT [Concomitant]

REACTIONS (1)
  - CARDIAC FAILURE CONGESTIVE [None]
